FAERS Safety Report 7075350-3 (Version None)
Quarter: 2010Q4

REPORT INFORMATION
  Report Type: 
  Country: None (occurrence: None)
  Receive Date: 20101030
  Receipt Date: 20101006
  Transmission Date: 20110411
  Serious: No
  Sender: FDA-Public Use
  Company Number: US-WYE-H17309410

PATIENT
  Age: 58 Year
  Sex: Male
  Weight: 83.9 kg

DRUGS (3)
  1. TORISEL [Suspect]
     Indication: RENAL CELL CARCINOMA
     Dosage: UNSPECIFIED
     Route: 042
     Dates: start: 20100101
  2. ZOMETA [Concomitant]
  3. BENADRYL [Concomitant]

REACTIONS (2)
  - INFUSION SITE PAIN [None]
  - INJECTION SITE EXTRAVASATION [None]
